FAERS Safety Report 16171779 (Version 2)
Quarter: 2019Q2

REPORT INFORMATION
  Report Type: Report from Study
  Country: JO (occurrence: JO)
  Receive Date: 20190408
  Receipt Date: 20190507
  Transmission Date: 20190711
  Serious: Yes (Other)
  Sender: FDA-Public Use
  Company Number: JO-TAKEDA-2019TUS019999

PATIENT
  Age: 25 Year
  Sex: Male

DRUGS (1)
  1. PONATINIB [Suspect]
     Active Substance: PONATINIB
     Indication: CHRONIC MYELOID LEUKAEMIA
     Dosage: 30 MILLIGRAM
     Route: 048
     Dates: start: 20180404

REACTIONS (1)
  - Graft versus host disease [Recovered/Resolved]
